FAERS Safety Report 23123323 (Version 1)
Quarter: 2023Q4

REPORT INFORMATION
  Report Type: Spontaneous
  Country: US (occurrence: US)
  Receive Date: 20231030
  Receipt Date: 20231030
  Transmission Date: 20240110
  Serious: No
  Sender: FDA-Public Use
  Company Number: US-Ipsen Biopharmaceuticals, Inc.-2023-24578

PATIENT
  Age: 60 Year
  Sex: Female

DRUGS (7)
  1. DYSPORT [Suspect]
     Active Substance: ABOBOTULINUMTOXINA
     Indication: Skin wrinkling
     Dosage: 10 UNITS TO GLABELLA, 15 UNITS TO BOTH CROWS, 2 UNITS UNDER EACH EYE
     Route: 065
     Dates: start: 20231009, end: 20231009
  2. DYSPORT [Suspect]
     Active Substance: ABOBOTULINUMTOXINA
     Indication: Skin wrinkling
  3. DYSPORT [Suspect]
     Active Substance: ABOBOTULINUMTOXINA
     Indication: Skin wrinkling
  4. DYSPORT [Suspect]
     Active Substance: ABOBOTULINUMTOXINA
     Indication: Off label use
  5. PROLIA [Concomitant]
     Active Substance: DENOSUMAB
     Indication: Bone disorder
  6. ENBREL [Concomitant]
     Active Substance: ETANERCEPT
     Indication: Bone disorder
  7. SPIRIVA [Concomitant]
     Active Substance: TIOTROPIUM BROMIDE MONOHYDRATE
     Indication: Wheezing

REACTIONS (4)
  - Injection site inflammation [Recovered/Resolved]
  - Injection site oedema [Unknown]
  - Injection site swelling [Unknown]
  - Off label use [Unknown]

NARRATIVE: CASE EVENT DATE: 20231009
